FAERS Safety Report 5634097-8 (Version None)
Quarter: 2008Q1

REPORT INFORMATION
  Report Type: 
  Country: None (occurrence: None)
  Receive Date: 20080131
  Receipt Date: 20070621
  Transmission Date: 20080703
  Serious: Yes (Other)
  Sender: FDA-Public Use
  Company Number: 157983USA

PATIENT
  Age: 50 Year
  Sex: Female

DRUGS (2)
  1. COPAXONE [Suspect]
     Dosage: (20 MG),SUBCUTANEOUS
     Route: 058
  2. INTERFERON BETA-1A [Suspect]
     Dates: end: 20070115

REACTIONS (1)
  - BLINDNESS [None]
